FAERS Safety Report 5068902-3 (Version None)
Quarter: 2006Q3

REPORT INFORMATION
  Report Type: 
  Country: None (occurrence: None)
  Receive Date: 20060802
  Receipt Date: 20060531
  Transmission Date: 20061208
  Serious: No
  Sender: FDA-Public Use
  Company Number: US-BRISTOL-MYERS SQUIBB COMPANY-13396213

PATIENT
  Age: 44 Year
  Sex: Female
  Weight: 57 kg

DRUGS (3)
  1. COUMADIN [Suspect]
     Indication: COLON OPERATION
     Dates: start: 20060401
  2. ALPRAZOLAM [Concomitant]
  3. LEXAPRO [Concomitant]

REACTIONS (1)
  - ALOPECIA [None]
